FAERS Safety Report 9246269 (Version 1)
Quarter: 2013Q2

REPORT INFORMATION
  Report Type: Spontaneous
  Country: US (occurrence: US)
  Receive Date: 20130422
  Receipt Date: 20130422
  Transmission Date: 20140414
  Serious: Yes (Hospitalization)
  Sender: FDA-Public Use
  Company Number: US-TEVA-399069USA

PATIENT
  Age: 64 Year
  Sex: Female
  Weight: 95.34 kg

DRUGS (7)
  1. PROAIR HFA [Suspect]
     Indication: ASTHMA
     Dosage: 1-2 INHALATIONS
     Route: 055
  2. TARKA [Concomitant]
     Indication: BLOOD PRESSURE
  3. JANUMET [Concomitant]
     Indication: DIABETES MELLITUS
     Dosage: 500/1000MG
  4. SYNTHROID [Concomitant]
     Indication: THYROID DISORDER
     Dosage: 50 MILLIGRAM DAILY;
  5. ADVAIR [Concomitant]
     Indication: ASTHMA
  6. LEXAPRO [Concomitant]
     Indication: DEPRESSION
  7. ICAPS [Concomitant]
     Indication: MACULAR DEGENERATION

REACTIONS (1)
  - Ankle fracture [Not Recovered/Not Resolved]
